FAERS Safety Report 9254997 (Version 4)
Quarter: 2013Q4

REPORT INFORMATION
  Report Type: Spontaneous
  Country: GB (occurrence: None)
  Receive Date: 20130422
  Receipt Date: 20131031
  Transmission Date: 20140711
  Serious: Yes (Other)
  Sender: FDA-Public Use
  Company Number: AUR-APL-2013-03141

PATIENT
  Age: 78 Year
  Sex: Male
  Weight: 79.82 kg

DRUGS (1)
  1. RAMIPRIL (RAMIPRIL) [Suspect]
     Indication: RENAL FAILURE
     Route: 048
     Dates: start: 20121005, end: 20121015

REACTIONS (4)
  - Balance disorder [None]
  - Dyspnoea [None]
  - Neuropathy peripheral [None]
  - Sensory loss [None]
